FAERS Safety Report 23592422 (Version 1)
Quarter: 2024Q1

REPORT INFORMATION
  Report Type: Spontaneous
  Country: IN (occurrence: None)
  Receive Date: 20240304
  Receipt Date: 20240304
  Transmission Date: 20240410
  Serious: Yes (Death)
  Sender: FDA-Public Use
  Company Number: 2024A051081

PATIENT
  Age: 28904 Day
  Sex: Male
  Weight: 65 kg

DRUGS (2)
  1. BRILINTA [Suspect]
     Active Substance: TICAGRELOR
     Indication: Acute coronary syndrome
     Dosage: 180.0MG ONCE/SINGLE ADMINISTRATION
     Route: 048
  2. BRILINTA [Suspect]
     Active Substance: TICAGRELOR
     Indication: Acute coronary syndrome
     Dosage: ONCE/SINGLE ADMINISTRATION
     Route: 048

REACTIONS (2)
  - Cerebral haemorrhage [Fatal]
  - Haemorrhage [Fatal]

NARRATIVE: CASE EVENT DATE: 20240220
